FAERS Safety Report 18601409 (Version 1)
Quarter: 2020Q4

REPORT INFORMATION
  Report Type: Spontaneous
  Country: NL (occurrence: NL)
  Receive Date: 20201210
  Receipt Date: 20201210
  Transmission Date: 20210114
  Serious: Yes (Life-Threatening)
  Sender: FDA-Public Use
  Company Number: NL-TEVA-2020-NL-1856002

PATIENT
  Sex: Male
  Weight: 95 kg

DRUGS (6)
  1. CARMUSTINE PDR V INFVLST 100MG / BRAND NAME NOT SPECIFIED [Suspect]
     Active Substance: CARMUSTINE
     Indication: HODGKIN^S DISEASE
     Dosage: 666,THERAPY  END DATE: ASKED BUT UNKNOWN
     Route: 065
     Dates: start: 20201112
  2. CIPROFLOXACINE TABLET 500MG / BRAND NAME NOT SPECIFIED [Suspect]
     Active Substance: CIPROFLOXACIN
     Indication: NEUTROPENIA
     Dosage: 2 DOSAGE FORMS DAILY; 2X PER DAY 1 PIECE,THERAPY  END DATE: ASKED BUT UNKNOWN
     Route: 065
     Dates: start: 20201112
  3. FLUCONAZOL CAPSULE 200MG / BRAND NAME NOT SPECIFIED [Suspect]
     Active Substance: FLUCONAZOLE
     Indication: NEUTROPENIA
     Dosage: 1 DOSAGE FORMS DAILY; 1X PER DAY 1 PIECE
     Route: 065
     Dates: start: 20201112, end: 20201119
  4. MELFALAN INFUUS / BRAND NAME NOT SPECIFIED [Suspect]
     Active Substance: MELPHALAN
     Indication: HODGKIN^S DISEASE
     Dosage: 311MG,THERAPY  END DATE: ASKED BUT UNKNOWN
     Dates: start: 20201112
  5. ETOPOSIDE INFOPL CONC 20MG/ML / EPOSIN INFUSIEVLOEISTOF CONC 20MG/ML F [Suspect]
     Active Substance: ETOPOSIDE
     Indication: PRODUCT USED FOR UNKNOWN INDICATION
     Dosage: 222,THERAPY  END DATE: ASKED BUT UNKNOWN
     Route: 065
     Dates: start: 20201112
  6. CYTARABINE INFOPL CONC 100MG/ML / BRAND NAME NOT SPECIFIED [Suspect]
     Active Substance: CYTARABINE
     Indication: PRODUCT USED FOR UNKNOWN INDICATION
     Dosage: 444MG,THERAPY  END DATE: ASKED BUT UNKNOWN
     Route: 065
     Dates: start: 20201112

REACTIONS (1)
  - Epilepsy [Recovered/Resolved]

NARRATIVE: CASE EVENT DATE: 20201118
